FAERS Safety Report 13491827 (Version 3)
Quarter: 2017Q2

REPORT INFORMATION
  Report Type: Report from Study
  Country: CO (occurrence: CO)
  Receive Date: 20170427
  Receipt Date: 20170512
  Transmission Date: 20170830
  Serious: Yes (Hospitalization)
  Sender: FDA-Public Use
  Company Number: PHHY2017CO060810

PATIENT
  Age: 32 Year
  Sex: Female
  Weight: 55 kg

DRUGS (1)
  1. GLIVEC [Suspect]
     Active Substance: IMATINIB MESYLATE
     Indication: MYELOPROLIFERATIVE NEOPLASM
     Dosage: 400 MG, QD
     Route: 048
     Dates: start: 20140701

REACTIONS (13)
  - Hepatomegaly [Unknown]
  - Hepatitis [Unknown]
  - Abdominal pain [Recovering/Resolving]
  - Splenitis [Unknown]
  - Splenomegaly [Unknown]
  - Recurrent cancer [Unknown]
  - Abdominal pain upper [Recovering/Resolving]
  - White blood cell count increased [Unknown]
  - Pyrexia [Recovered/Resolved]
  - Contusion [Unknown]
  - Headache [Recovering/Resolving]
  - Myeloproliferative neoplasm [Unknown]
  - Chronic myeloid leukaemia recurrent [Unknown]

NARRATIVE: CASE EVENT DATE: 20170417
